FAERS Safety Report 7000901-4 (Version None)
Quarter: 2010Q3

REPORT INFORMATION
  Report Type: 
  Country: None (occurrence: None)
  Receive Date: 20100920
  Receipt Date: 20100909
  Transmission Date: 20110219
  Serious: Yes (Other)
  Sender: FDA-Public Use
  Company Number: PHHY2010IE05151

PATIENT
  Sex: Female

DRUGS (8)
  1. CLOZARIL [Suspect]
     Indication: SCHIZOPHRENIA
     Dosage: 250 MG DAILY
     Route: 048
     Dates: start: 19990212
  2. CLOZARIL [Suspect]
     Indication: SCHIZOAFFECTIVE DISORDER
  3. ELTROXIN [Concomitant]
     Indication: HYPOTHYROIDISM
     Dosage: 100/150MG/DAY
     Route: 048
  4. LITHIUM [Concomitant]
     Indication: SCHIZOAFFECTIVE DISORDER
     Dosage: 600 MG DAILY
     Route: 048
  5. CITALOPRAM HYDROBROMIDE [Concomitant]
     Indication: SCHIZOAFFECTIVE DISORDER
     Dosage: 10MG DAILY
     Route: 048
     Dates: start: 20090101
  6. ZOLPIDEM [Concomitant]
     Indication: SCHIZOAFFECTIVE DISORDER
     Dosage: 10MG DAILY
     Route: 048
     Dates: start: 19900101
  7. ZOLPIDEM [Concomitant]
     Indication: INSOMNIA
  8. LEVOTHYROXINE SODIUM [Concomitant]
     Dosage: UNK

REACTIONS (5)
  - ELECTROCARDIOGRAM QT PROLONGED [None]
  - FIBROADENOMA OF BREAST [None]
  - HYPOTHYROIDISM [None]
  - ORTHOSTATIC HYPOTENSION [None]
  - SURGERY [None]
